FAERS Safety Report 11229623 (Version 1)
Quarter: 2015Q2

REPORT INFORMATION
  Report Type: Other
  Country: GB (occurrence: GB)
  Receive Date: 20150630
  Receipt Date: 20150630
  Transmission Date: 20150821
  Serious: Yes (Other)
  Sender: FDA-Public Use
  Company Number: GB-SHIRE-GB201506454

PATIENT
  Age: 7 Year
  Sex: Female

DRUGS (1)
  1. VPRIV [Suspect]
     Active Substance: VELAGLUCERASE ALFA
     Indication: GAUCHER^S DISEASE
     Dosage: 2400  (6 VIALS) IU, UNKNOWN
     Route: 041
     Dates: start: 20150601

REACTIONS (5)
  - Vomiting [Recovered/Resolved]
  - Tonsillar disorder [Recovering/Resolving]
  - Depressed mood [Recovered/Resolved]
  - Lethargy [Recovered/Resolved]
  - Body temperature abnormal [Recovered/Resolved]

NARRATIVE: CASE EVENT DATE: 201506
